FAERS Safety Report 4461365-8 (Version None)
Quarter: 2004Q3

REPORT INFORMATION
  Report Type: 
  Country: None (occurrence: None)
  Receive Date: 20040928
  Receipt Date: 20030822
  Transmission Date: 20050211
  Serious: Yes (Other)
  Sender: FDA-Public Use
  Company Number: PHHO2003US10781

PATIENT
  Age: 33 Year
  Sex: Female
  Weight: 51 kg

DRUGS (1)
  1. TEGASEROD (HTF-919) VS PLACEBO [Suspect]
     Indication: GASTROOESOPHAGEAL REFLUX DISEASE
     Dosage: +PLACEBO 2MG BID
     Route: 048
     Dates: start: 19990201, end: 19991001

REACTIONS (3)
  - ABORTION INDUCED [None]
  - DRUG EXPOSURE DURING PREGNANCY [None]
  - PREGNANCY [None]
